FAERS Safety Report 8181957-2 (Version None)
Quarter: 2012Q1

REPORT INFORMATION
  Report Type: 
  Country: None (occurrence: None)
  Receive Date: 20120302
  Receipt Date: 20120220
  Transmission Date: 20120608
  Serious: Yes (Other)
  Sender: FDA-Public Use
  Company Number: PHFR2011GB007404

PATIENT
  Sex: Male

DRUGS (3)
  1. CLOZARIL [Suspect]
     Indication: AFFECTIVE DISORDER
     Dosage: 400 MG,
     Route: 048
     Dates: start: 20110811
  2. CLOZARIL [Suspect]
     Dosage: 200 MG, DAILY
     Route: 048
  3. VALPROATE SODIUM [Concomitant]
     Indication: AFFECTIVE DISORDER
     Dosage: 400 MG

REACTIONS (5)
  - WHITE BLOOD CELL COUNT INCREASED [None]
  - HAEMATURIA [None]
  - MICROCYTOSIS [None]
  - ALANINE AMINOTRANSFERASE INCREASED [None]
  - HYPOCHROMASIA [None]
